FAERS Safety Report 9831539 (Version 2)
Quarter: 2014Q4

REPORT INFORMATION
  Report Type: Report from Study
  Country: US (occurrence: US)
  Receive Date: 20140121
  Receipt Date: 20141121
  Transmission Date: 20150529
  Serious: Yes (Other)
  Sender: FDA-Public Use
  Company Number: US-ROCHE-1332940

PATIENT
  Sex: Female
  Weight: 29.1 kg

DRUGS (2)
  1. NUTROPIN AQ [Suspect]
     Active Substance: SOMATROPIN
     Dosage: NUSPIN 10 MG (0.1 MG DOSING), DAILY 7 DAYS PER WEEK
     Route: 058
     Dates: start: 20131218
  2. NUTROPIN AQ [Suspect]
     Active Substance: SOMATROPIN
     Indication: PRODUCT USED FOR UNKNOWN INDICATION
     Route: 058
     Dates: end: 20131218

REACTIONS (4)
  - Glycosylated haemoglobin increased [Unknown]
  - Drug dose omission [Unknown]
  - Growth retardation [Unknown]
  - Weight increased [Unknown]
